FAERS Safety Report 5484997-7 (Version None)
Quarter: 2007Q4

REPORT INFORMATION
  Report Type: 
  Country: None (occurrence: None)
  Receive Date: 20071015
  Receipt Date: 20070215
  Transmission Date: 20080405
  Serious: Yes (Other)
  Sender: FDA-Public Use
  Company Number: NO-NOVOPROD-268371

PATIENT
  Sex: Female

DRUGS (2)
  1. LEVEMIR [Suspect]
     Indication: DIABETES MELLITUS
     Dosage: 65 IU, UNK
     Route: 058
     Dates: start: 20050801
  2. NOVORAPID [Concomitant]
     Indication: DIABETES MELLITUS
     Dosage: 27 IU, QD
     Route: 058

REACTIONS (1)
  - INTRA-UTERINE DEATH [None]
